FAERS Safety Report 6357495-6 (Version None)
Quarter: 2009Q3

REPORT INFORMATION
  Report Type: 
  Country: None (occurrence: None)
  Receive Date: 20090916
  Receipt Date: 20090909
  Transmission Date: 20100115
  Serious: Yes (Hospitalization)
  Sender: FDA-Public Use
  Company Number: FR-ROCHE-655773

PATIENT
  Sex: Female

DRUGS (7)
  1. APRANAX [Suspect]
     Indication: DRUG USE FOR UNKNOWN INDICATION
     Route: 048
     Dates: end: 20090527
  2. LANSOPRAZOLE [Suspect]
     Indication: DRUG USE FOR UNKNOWN INDICATION
     Route: 048
     Dates: end: 20090527
  3. TAHOR [Concomitant]
     Dosage: DRUG NAME TAHOR 10
     Dates: start: 19990101
  4. COZAAR [Concomitant]
     Dosage: DRUG NAME: COZAAR 50
     Dates: start: 20080101
  5. VASTAREL [Concomitant]
     Dosage: DRUG NAME: VASTAREL 35
     Dates: start: 19940101
  6. DIALGIREX [Concomitant]
  7. HEPATITIS B VACCINE [Concomitant]

REACTIONS (3)
  - CONDITION AGGRAVATED [None]
  - ECCHYMOSIS [None]
  - THROMBOCYTOPENIA [None]
